FAERS Safety Report 11810694 (Version 1)
Quarter: 2015Q4

REPORT INFORMATION
  Report Type: Spontaneous
  Country: US (occurrence: None)
  Receive Date: 20151207
  Receipt Date: 20151207
  Transmission Date: 20160305
  Serious: Yes (Other)
  Sender: FDA-Public Use
  Company Number: None

PATIENT
  Age: 37 Year
  Sex: Female
  Weight: 61.24 kg

DRUGS (3)
  1. JUBLIA [Suspect]
     Active Substance: EFINACONAZOLE
     Indication: ONYCHOMYCOSIS
     Dosage: APPLIED TO A SURFACE USUALLY THE SKIN
     Dates: start: 20151202, end: 20151204
  2. IBUPROFEN. [Concomitant]
     Active Substance: IBUPROFEN
  3. PREMARIN [Concomitant]
     Active Substance: ESTROGENS, CONJUGATED

REACTIONS (3)
  - Application site erythema [None]
  - Application site vesicles [None]
  - Application site pruritus [None]

NARRATIVE: CASE EVENT DATE: 20150202
